FAERS Safety Report 13257227 (Version 1)
Quarter: 2017Q1

REPORT INFORMATION
  Report Type: Spontaneous
  Country: DE (occurrence: DE)
  Receive Date: 20170221
  Receipt Date: 20170221
  Transmission Date: 20170428
  Serious: Yes (Other)
  Sender: FDA-Public Use
  Company Number: DE-TEVA-740286GER

PATIENT
  Age: 60 Year
  Sex: Female
  Weight: 60 kg

DRUGS (1)
  1. AMOXI 1000MG [Suspect]
     Active Substance: AMOXICILLIN
     Indication: DENTAL OPERATION
     Dosage: 3000 MILLIGRAM DAILY;
     Dates: start: 20170121

REACTIONS (5)
  - Heart rate irregular [Unknown]
  - Swelling face [Unknown]
  - Dizziness [Unknown]
  - Blood pressure decreased [Unknown]
  - Respiratory distress [Unknown]

NARRATIVE: CASE EVENT DATE: 20170125
